FAERS Safety Report 23111624 (Version 1)
Quarter: 2023Q4

REPORT INFORMATION
  Report Type: Spontaneous
  Country: US (occurrence: US)
  Receive Date: 20231026
  Receipt Date: 20231026
  Transmission Date: 20240110
  Serious: No
  Sender: FDA-Public Use
  Company Number: US-TEVA-2023-US-2935125

PATIENT
  Age: 50 Year
  Sex: Female

DRUGS (2)
  1. AJOVY [Suspect]
     Active Substance: FREMANEZUMAB-VFRM
     Indication: Migraine
     Dosage: FORM STRENGTH: 225 MG / 1.5 ML ?STARTED TWO YEARS AGO
     Route: 065
  2. BENADRYL [Concomitant]
     Active Substance: DIPHENHYDRAMINE HYDROCHLORIDE
     Indication: Product used for unknown indication
     Route: 065

REACTIONS (8)
  - Injection site pain [Unknown]
  - Injection site haemorrhage [Unknown]
  - Injection site rash [Unknown]
  - Accidental exposure to product [Unknown]
  - Device leakage [Unknown]
  - Device audio issue [Unknown]
  - Device defective [Unknown]
  - Liquid product physical issue [Unknown]

NARRATIVE: CASE EVENT DATE: 20231001
